FAERS Safety Report 10291402 (Version 1)
Quarter: 2014Q3

REPORT INFORMATION
  Report Type: Spontaneous
  Country: AR (occurrence: None)
  Receive Date: 20140708
  Receipt Date: 20140708
  Transmission Date: 20150326
  Serious: Yes (Disabling, Other)
  Sender: FDA-Public Use
  Company Number: VAL_03202_2014

PATIENT
  Sex: Female

DRUGS (1)
  1. PARLODEL [Suspect]
     Active Substance: BROMOCRIPTINE MESYLATE
     Indication: PITUITARY TUMOUR
     Route: 048
     Dates: start: 1980, end: 201305

REACTIONS (8)
  - Arthralgia [None]
  - Dentofacial anomaly [None]
  - Anxiety [None]
  - Gait disturbance [None]
  - Feeling abnormal [None]
  - Hand deformity [None]
  - Nose deformity [None]
  - Feeling of despair [None]

NARRATIVE: CASE EVENT DATE: 2013
